FAERS Safety Report 9284076 (Version 1)
Quarter: 2013Q2

REPORT INFORMATION
  Report Type: Spontaneous
  Country: US (occurrence: US)
  Receive Date: 20130510
  Receipt Date: 20130510
  Transmission Date: 20140414
  Serious: No
  Sender: FDA-Public Use
  Company Number: US-ASTRAZENECA-2013SE29402

PATIENT
  Age: 60 Year
  Sex: Female

DRUGS (1)
  1. FASLODEX [Suspect]
     Indication: BREAST CANCER
     Route: 030

REACTIONS (3)
  - Activities of daily living impaired [Unknown]
  - Injection site urticaria [Recovered/Resolved with Sequelae]
  - Injection site abscess [Unknown]
